FAERS Safety Report 11936530 (Version 1)
Quarter: 2016Q1

REPORT INFORMATION
  Report Type: Report from Study
  Country: US (occurrence: US)
  Receive Date: 20160121
  Receipt Date: 20160121
  Transmission Date: 20160526
  Serious: Yes (Hospitalization, Other)
  Sender: FDA-Public Use
  Company Number: US-BAXTER-2016BAX001791

PATIENT
  Age: 77 Year

DRUGS (3)
  1. CYTOXAN [Suspect]
     Active Substance: CYCLOPHOSPHAMIDE
     Indication: PLASMA CELL MYELOMA
     Dosage: LABEL STRENGTH: 500 UNITS NOT REPORTED
     Route: 042
     Dates: start: 20130618, end: 20130716
  2. VELCADE [Suspect]
     Active Substance: BORTEZOMIB
     Indication: PLASMA CELL MYELOMA
     Dosage: DAYS 1, 4, 8, 11
     Route: 058
     Dates: start: 20130618, end: 20130716
  3. DECADRON [Suspect]
     Active Substance: DEXAMETHASONE
     Indication: PLASMA CELL MYELOMA
     Dosage: LABEL STRENGTH:40 UNITS NOT REPORTED
     Route: 048
     Dates: start: 20130618, end: 20130716

REACTIONS (3)
  - Joint dislocation [Unknown]
  - Procedural pain [Recovered/Resolved]
  - Osteoarthritis [Unknown]

NARRATIVE: CASE EVENT DATE: 20130728
